FAERS Safety Report 6981804-8 (Version None)
Quarter: 2010Q3

REPORT INFORMATION
  Report Type: 
  Country: None (occurrence: None)
  Receive Date: 20100914
  Receipt Date: 20091116
  Transmission Date: 20110219
  Serious: No
  Sender: FDA-Public Use
  Company Number: US-PFIZER INC-2009268815

PATIENT
  Sex: Female
  Weight: 80.3 kg

DRUGS (4)
  1. LYRICA [Suspect]
     Indication: NERVE INJURY
     Dosage: 50 MG, 2X/DAY
     Route: 048
     Dates: start: 20090801
  2. NORVASC [Concomitant]
     Dosage: UNK
  3. SYNTHROID [Concomitant]
     Dosage: UNK
  4. TOPROL-XL [Concomitant]
     Dosage: UNK

REACTIONS (3)
  - BLADDER DISORDER [None]
  - DRY MOUTH [None]
  - INSOMNIA [None]
